FAERS Safety Report 6366932-2 (Version None)
Quarter: 2009Q3

REPORT INFORMATION
  Report Type: 
  Country: None (occurrence: None)
  Receive Date: 20090921
  Receipt Date: 20090917
  Transmission Date: 20100115
  Serious: Yes (Other)
  Sender: FDA-Public Use
  Company Number: AU-ROXANE LABORATORIES, INC.-2009-RO-00952RO

PATIENT
  Age: 29 Year
  Sex: Female

DRUGS (4)
  1. AZATHIOPRINE [Suspect]
     Indication: CROHN'S DISEASE
     Dosage: 200 MG
  2. AZATHIOPRINE [Suspect]
     Dosage: 150 MG
  3. MERCAPTOPURINE [Suspect]
     Indication: CROHN'S DISEASE
  4. PREDNISOLONE [Suspect]
     Indication: CROHN'S DISEASE

REACTIONS (3)
  - FATIGUE [None]
  - NEUTROPENIA [None]
  - SMALL INTESTINAL OBSTRUCTION [None]
